FAERS Safety Report 24670920 (Version 1)
Quarter: 2024Q4

REPORT INFORMATION
  Report Type: Report from Study
  Country: GB (occurrence: GB)
  Receive Date: 20241127
  Receipt Date: 20241127
  Transmission Date: 20250115
  Serious: Yes (Hospitalization)
  Sender: EISAI
  Company Number: GB-Eisai-EC-2024-179534

PATIENT
  Age: 54 Year
  Sex: Female

DRUGS (2)
  1. LENVIMA [Suspect]
     Active Substance: LENVATINIB
     Indication: Clear cell renal cell carcinoma
     Dosage: DOSE AND FREQUENCY UNKNOWN
     Route: 048
  2. KEYTRUDA [Suspect]
     Active Substance: PEMBROLIZUMAB
     Indication: Clear cell renal cell carcinoma
     Dosage: DOSE UNKNOWN
     Route: 042

REACTIONS (1)
  - Diarrhoea [Unknown]
